FAERS Safety Report 24767323 (Version 1)
Quarter: 2024Q4

REPORT INFORMATION
  Report Type: Spontaneous
  Country: US (occurrence: US)
  Receive Date: 20241223
  Receipt Date: 20241223
  Transmission Date: 20250115
  Serious: Yes (Death, Hospitalization, Other)
  Sender: INCYTE
  Company Number: US-INCYTE CORPORATION-2024IN013538

PATIENT

DRUGS (11)
  1. JAKAFI [Suspect]
     Active Substance: RUXOLITINIB
     Indication: Myelofibrosis
     Dosage: 5 MILLIGRAM, BID 21 DAYS CYCLE, 2/DAYS
     Route: 048
     Dates: start: 20200929, end: 20240423
  2. NAVITOCLAX [Suspect]
     Active Substance: NAVITOCLAX
     Indication: Myelofibrosis
     Dosage: 75 MILLIGRAM 21 DAY CYCLE, EVERY 1 DAYS
     Route: 048
     Dates: start: 20200928, end: 20240423
  3. ALBUTEROL [Concomitant]
     Active Substance: ALBUTEROL
     Indication: Asthma
     Dosage: 90 MICROGRAM EVERY 1 DAYS
     Dates: start: 200907
  4. ALBUTEROL [Concomitant]
     Active Substance: ALBUTEROL
     Indication: Dyspnoea
  5. LEVOTHYROXINE [Concomitant]
     Active Substance: LEVOTHYROXINE
     Indication: Hypothyroidism
     Dosage: 112 MICROGRAM EVERY 1 DAYS
     Route: 065
     Dates: start: 20130616
  6. OMEPRAZOLE [Concomitant]
     Active Substance: OMEPRAZOLE
     Indication: Gastrooesophageal reflux disease
     Dosage: 40 MILLIGRAM EVERY 1 DAYS
     Route: 065
     Dates: start: 201306
  7. PREDNISONE [Concomitant]
     Active Substance: PREDNISONE
     Indication: Rheumatoid arthritis
     Dosage: 5 MILLIGRAM EVERY 1 DAYS
     Route: 065
     Dates: start: 2018
  8. ESTRADIOL [Concomitant]
     Active Substance: ESTRADIOL
     Indication: Vulvovaginal dryness
     Dosage: 0.01 PERCENT 3/WEEKS
     Route: 065
     Dates: start: 2020
  9. CHOLESTYRAMINE [Concomitant]
     Active Substance: CHOLESTYRAMINE
     Indication: Hypercholesterolaemia
     Dosage: 4 MILLIGRAM 2/DAYS
     Route: 065
     Dates: start: 201308
  10. ONDANSETRON [Concomitant]
     Active Substance: ONDANSETRON
     Indication: Nausea
     Dosage: 4 MILLIGRAM 3/DAYS
     Route: 065
     Dates: start: 201811
  11. BACITRACIN [Concomitant]
     Active Substance: BACITRACIN
     Indication: Nail hypertrophy
     Dosage: AS NECESSARY
     Route: 065
     Dates: start: 20210113

REACTIONS (10)
  - Death [Fatal]
  - Atrial fibrillation [Unknown]
  - Arthropathy [Unknown]
  - Aortic stenosis [Unknown]
  - Osteomyelitis [Unknown]
  - Depression [Unknown]
  - Eczema nummular [Unknown]
  - Dizziness [Unknown]
  - Prothrombin time prolonged [Unknown]
  - Activated partial thromboplastin time prolonged [Unknown]

NARRATIVE: CASE EVENT DATE: 20240402
